FAERS Safety Report 5865507-9 (Version None)
Quarter: 2008Q3

REPORT INFORMATION
  Report Type: 
  Country: None (occurrence: None)
  Receive Date: 20080829
  Receipt Date: 20080826
  Transmission Date: 20090109
  Serious: Yes (Life-Threatening, Hospitalization, Other)
  Sender: FDA-Public Use
  Company Number: FR-BRISTOL-MYERS SQUIBB COMPANY-14316038

PATIENT
  Age: 32 Year
  Sex: Female

DRUGS (3)
  1. ABILIFY [Suspect]
     Indication: PSYCHOTIC DISORDER
     Dosage: 1 DOSAGEFORM = 1 TAB
     Route: 048
     Dates: start: 20060101
  2. LEVOTHYROX [Suspect]
     Indication: AUTOIMMUNE THYROIDITIS
     Dosage: TAKEN 1 TAB DAILY.
     Route: 048
  3. TRANXENE [Suspect]
     Indication: ANXIETY

REACTIONS (4)
  - ASTHENIA [None]
  - DYSPNOEA [None]
  - HAEMOLYTIC ANAEMIA [None]
  - HEADACHE [None]
